FAERS Safety Report 15927438 (Version 1)
Quarter: 2019Q1

REPORT INFORMATION
  Report Type: Spontaneous
  Country: ES (occurrence: ES)
  Receive Date: 20190206
  Receipt Date: 20190206
  Transmission Date: 20190417
  Serious: Yes (Hospitalization)
  Sender: FDA-Public Use
  Company Number: ES-BAYER-200511635GDS

PATIENT
  Age: 38 Year
  Sex: Male

DRUGS (3)
  1. ZARATOR [ATORVASTATIN] [Concomitant]
     Indication: UNEVALUABLE EVENT
     Dosage: 10 MG, QD
     Route: 048
  2. ADIRO 300 MG [Suspect]
     Active Substance: ASPIRIN
     Indication: ACUTE MYOCARDIAL INFARCTION
     Dosage: 300 MG, QD
     Route: 048
     Dates: start: 2000
  3. TENORMIN [Concomitant]
     Active Substance: ATENOLOL
     Indication: UNEVALUABLE EVENT
     Dosage: 50 MG, QD
     Route: 048

REACTIONS (1)
  - Pancreatitis [Recovered/Resolved]

NARRATIVE: CASE EVENT DATE: 20040727
